FAERS Safety Report 7383201-2 (Version None)
Quarter: 2011Q1

REPORT INFORMATION
  Report Type: 
  Country: None (occurrence: None)
  Receive Date: 20110330
  Receipt Date: 20110316
  Transmission Date: 20110831
  Serious: Yes (Other)
  Sender: FDA-Public Use
  Company Number: US-ELI_LILLY_AND_COMPANY-US201005000163

PATIENT
  Sex: Male

DRUGS (9)
  1. CALTRATE [Concomitant]
  2. FORTEO [Suspect]
     Indication: OSTEOPOROSIS
     Dosage: 20 UG, DAILY (1/D)
     Dates: start: 20090901
  3. FORTEO [Suspect]
     Dosage: 20 UG, DAILY (1/D)
  4. OMEPRAZOLE [Concomitant]
  5. FORTEO [Suspect]
     Dosage: 20 UG, DAILY (1/D)
  6. NIFEDIPINE [Concomitant]
  7. FERROUS SULFATE TAB [Concomitant]
  8. SUCRALFAT [Concomitant]
  9. MULTIVITAMIN [Concomitant]
     Indication: EYE DISORDER

REACTIONS (2)
  - TONGUE NEOPLASM [None]
  - MUSCULOSKELETAL DISCOMFORT [None]
